FAERS Safety Report 17890091 (Version 1)
Quarter: 2020Q2

REPORT INFORMATION
  Report Type: Spontaneous
  Country: DE (occurrence: DE)
  Receive Date: 20200612
  Receipt Date: 20200612
  Transmission Date: 20200714
  Serious: Yes (Other)
  Sender: FDA-Public Use
  Company Number: DE-TEVA-2020-DE-1247523

PATIENT
  Sex: Female

DRUGS (4)
  1. TRIMIPRAMIN-NEURAXPHARM [Suspect]
     Active Substance: TRIMIPRAMINE MALEATE
     Dosage: DRUGS TAKEN DAILY; UNIT DOSE: 12.5MG
  2. SIMVASTATIN-RATIOPHARM 20 MG [Suspect]
     Active Substance: SIMVASTATIN
     Dosage: DRUGS TAKEN DAILY
  3. METOPROLOL 100MG [Suspect]
     Active Substance: METOPROLOL
     Dosage: DRUGS TAKEN DAILY
  4. CANDECOR COMP. 32 MG/ 25 MG TABLETTEN [Suspect]
     Active Substance: CANDESARTAN CILEXETIL\HYDROCHLOROTHIAZIDE
     Dosage: DRUGS TAKEN DAILY

REACTIONS (1)
  - Hypnagogic hallucination [Unknown]
